FAERS Safety Report 17996023 (Version 1)
Quarter: 2020Q3

REPORT INFORMATION
  Report Type: Spontaneous
  Country: US (occurrence: US)
  Receive Date: 20200708
  Receipt Date: 20200708
  Transmission Date: 20201103
  Serious: Yes (Other)
  Sender: FDA-Public Use
  Company Number: US-PFIZER INC-2020261500

PATIENT

DRUGS (1)
  1. BOSUTINIB [Suspect]
     Active Substance: BOSUTINIB
     Dosage: UNK

REACTIONS (4)
  - Hepatic function abnormal [Unknown]
  - Sickle cell disease [Unknown]
  - Renal impairment [Unknown]
  - Haemoglobin decreased [Unknown]
